FAERS Safety Report 22226397 (Version 1)
Quarter: 2023Q2

REPORT INFORMATION
  Report Type: Spontaneous
  Country: JP (occurrence: None)
  Receive Date: 20230419
  Receipt Date: 20230419
  Transmission Date: 20230721
  Serious: Yes (Life-Threatening, Hospitalization, Other)
  Sender: FDA-Public Use
  Company Number: JP-Merck Healthcare KGaA-9339204

PATIENT
  Age: 66 Year
  Sex: Female
  Weight: 64 kg

DRUGS (14)
  1. METGLUCO [Suspect]
     Active Substance: METFORMIN HYDROCHLORIDE
     Indication: Diabetes mellitus
     Route: 048
     Dates: start: 202006, end: 20220619
  2. METGLUCO [Suspect]
     Active Substance: METFORMIN HYDROCHLORIDE
     Route: 048
     Dates: start: 20220620, end: 20220718
  3. METOCLOPRAMIDE [Suspect]
     Active Substance: METOCLOPRAMIDE
     Indication: Product used for unknown indication
     Route: 065
  4. BISOPROLOL FUMARATE [Suspect]
     Active Substance: BISOPROLOL FUMARATE
     Indication: Product used for unknown indication
     Route: 048
     Dates: end: 20220718
  5. LYRICA [Suspect]
     Active Substance: PREGABALIN
     Indication: Product used for unknown indication
     Route: 048
     Dates: end: 20220718
  6. TRULICITY [Concomitant]
     Active Substance: DULAGLUTIDE
     Indication: Product used for unknown indication
     Route: 058
     Dates: start: 20220620, end: 20220718
  7. TRICHLORMETHIAZIDE [Concomitant]
     Active Substance: TRICHLORMETHIAZIDE
     Indication: Product used for unknown indication
     Route: 048
     Dates: end: 20220718
  8. ROSUVASTATIN CALCIUM [Concomitant]
     Active Substance: ROSUVASTATIN CALCIUM
     Indication: Product used for unknown indication
     Route: 048
     Dates: end: 20220718
  9. VONOPRAZAN FUMARATE [Concomitant]
     Active Substance: VONOPRAZAN FUMARATE
     Indication: Product used for unknown indication
     Route: 048
     Dates: end: 20220718
  10. NICORANDIL [Concomitant]
     Active Substance: NICORANDIL
     Indication: Product used for unknown indication
     Route: 065
     Dates: end: 20220718
  11. MAGNESIUM OXIDE [Concomitant]
     Active Substance: MAGNESIUM OXIDE
     Indication: Product used for unknown indication
     Route: 048
     Dates: end: 20220718
  12. ACETAMINOPHEN\TRAMADOL HYDROCHLORIDE [Concomitant]
     Active Substance: ACETAMINOPHEN\TRAMADOL HYDROCHLORIDE
     Indication: Product used for unknown indication
     Route: 048
     Dates: end: 20220718
  13. ASPIRIN [Concomitant]
     Active Substance: ASPIRIN
     Indication: Product used for unknown indication
     Route: 048
     Dates: end: 20220718
  14. CALONAL [Concomitant]
     Active Substance: ACETAMINOPHEN
     Indication: Product used for unknown indication
     Dates: end: 20220718

REACTIONS (10)
  - Cardio-respiratory arrest [Unknown]
  - Atrioventricular block complete [Unknown]
  - Lactic acidosis [Recovering/Resolving]
  - Acute kidney injury [Recovering/Resolving]
  - Hyperkalaemia [Recovering/Resolving]
  - Toxicity to various agents [Unknown]
  - Drug dependence [Unknown]
  - Vitamin B1 deficiency [Unknown]
  - Diabetes mellitus inadequate control [Unknown]
  - Incorrect dose administered [Unknown]

NARRATIVE: CASE EVENT DATE: 20220718
